FAERS Safety Report 26028676 (Version 1)
Quarter: 2025Q4

REPORT INFORMATION
  Report Type: Spontaneous
  Country: US (occurrence: US)
  Receive Date: 20251111
  Receipt Date: 20251111
  Transmission Date: 20260118
  Serious: Yes (Hospitalization, Other)
  Sender: CIPLA
  Company Number: US-CIPLA LTD.-2025US14034

PATIENT

DRUGS (1)
  1. BUPROPION [Suspect]
     Active Substance: BUPROPION
     Dosage: UNK, 200 PILLS, INGESTED
     Route: 048

REACTIONS (9)
  - Abnormal behaviour [Unknown]
  - Overdose [Unknown]
  - Cardiac arrest [Unknown]
  - Pulmonary embolism [Unknown]
  - Electrocardiogram QT prolonged [Unknown]
  - Agitation [Unknown]
  - Somnolence [Unknown]
  - Sinus tachycardia [Unknown]
  - Hypotension [Unknown]
